FAERS Safety Report 4777397-6 (Version None)
Quarter: 2005Q3

REPORT INFORMATION
  Report Type: 
  Country: None (occurrence: None)
  Receive Date: 20050915
  Receipt Date: 20050830
  Transmission Date: 20060218
  Serious: Yes (Hospitalization)
  Sender: FDA-Public Use
  Company Number: 12231

PATIENT
  Age: 75 Year
  Sex: Female

DRUGS (4)
  1. FLUOROURACIL [Suspect]
     Indication: BREAST CANCER
     Dosage: 1000 MG PER_CYCLE IV
     Route: 042
  2. METHOTREXATE [Suspect]
     Indication: BREAST CANCER
     Dosage: 85 MG PER_CYCLE IV
     Route: 042
     Dates: end: 20050721
  3. CYCLOPHOSPHAMIDE [Suspect]
     Indication: BREAST CANCER
     Dosage: 1300 MG PER _CYCLE IV
     Route: 042
  4. RAMIPRIL [Concomitant]

REACTIONS (3)
  - BACTERIAL INFECTION [None]
  - BLOOD CULTURE POSITIVE [None]
  - NEUTROPENIC SEPSIS [None]
